FAERS Safety Report 15067021 (Version 2)
Quarter: 2018Q3

REPORT INFORMATION
  Report Type: Other
  Country: JP (occurrence: JP)
  Receive Date: 20180626
  Receipt Date: 20180920
  Transmission Date: 20181010
  Serious: Yes (Hospitalization, Other)
  Sender: FDA-Public Use
  Company Number: JP-LUNDBECK-DKLU2050591

PATIENT
  Age: 7 Month
  Sex: Female

DRUGS (1)
  1. SABRIL [Suspect]
     Active Substance: VIGABATRIN
     Indication: INFANTILE SPASMS
     Route: 048

REACTIONS (13)
  - Visual impairment [Recovering/Resolving]
  - Hyperhidrosis [Recovering/Resolving]
  - Hot flush [Recovering/Resolving]
  - Infantile spasms [Recovering/Resolving]
  - Strabismus [Recovering/Resolving]
  - Hypertonia [Recovering/Resolving]
  - Dyskinesia [Recovering/Resolving]
  - Head titubation [Recovering/Resolving]
  - Ocular dysmetria [Recovering/Resolving]
  - Bradycardia [Recovering/Resolving]
  - Nuclear magnetic resonance imaging brain abnormal [Recovering/Resolving]
  - Facial spasm [Recovering/Resolving]
  - Feeding disorder [Recovering/Resolving]
